FAERS Safety Report 22119449 (Version 1)
Quarter: 2023Q1

REPORT INFORMATION
  Report Type: Spontaneous
  Country: US (occurrence: None)
  Receive Date: 20230320
  Receipt Date: 20230320
  Transmission Date: 20230417
  Serious: Yes (Other)
  Sender: FDA-Public Use
  Company Number: None

PATIENT
  Age: 74 Year
  Sex: Male
  Weight: 83.7 kg

DRUGS (1)
  1. ALFUZOSIN [Suspect]
     Active Substance: ALFUZOSIN
     Indication: Benign prostatic hyperplasia
     Dosage: FREQUENCY : DAILY;?
     Route: 048
     Dates: start: 20230201, end: 20230301

REACTIONS (7)
  - Decreased appetite [None]
  - Pyrexia [None]
  - Orthostatic hypotension [None]
  - Fatigue [None]
  - Hepatic enzyme increased [None]
  - Blood bilirubin increased [None]
  - Hyponatraemia [None]

NARRATIVE: CASE EVENT DATE: 20230301
